FAERS Safety Report 20334518 (Version 1)
Quarter: 2022Q1

REPORT INFORMATION
  Report Type: Spontaneous
  Country: CN (occurrence: None)
  Receive Date: 20220114
  Receipt Date: 20220114
  Transmission Date: 20220424
  Serious: Yes (Other)
  Sender: FDA-Public Use
  Company Number: CN-ROCHE-2999138

PATIENT
  Age: 65 Year
  Sex: Male

DRUGS (22)
  1. MABTHERA [Suspect]
     Active Substance: RITUXIMAB
     Indication: Mantle cell lymphoma stage IV
     Dosage: ON DAY 0, ON 08 MAY 2014, 08 JUN 2014, 10 JUL 2014, 08 AUG 2014, 13 SEP 2014, 23 OCT 2014 AND 06 DEC
     Route: 065
     Dates: start: 20140408
  2. GAZYVA [Suspect]
     Active Substance: OBINUTUZUMAB
     Indication: Mantle cell lymphoma stage IV
     Route: 042
     Dates: start: 20210917
  3. INSULIN NOS [Concomitant]
     Active Substance: INSULIN NOS
     Indication: Type 2 diabetes mellitus
     Route: 065
  4. CYCLOPHOSPHAMIDE [Concomitant]
     Active Substance: CYCLOPHOSPHAMIDE
     Indication: Mantle cell lymphoma stage IV
     Dosage: ON DAY 0, ON 08 MAY 2014, 08 JUN 2014, 10 JUL 2014, 08 AUG 2014, 13 SEP 2014, 23 OCT 2014 AND 06 DEC
     Route: 065
     Dates: start: 20140408
  5. PIRARUBICIN [Concomitant]
     Active Substance: PIRARUBICIN
     Indication: Mantle cell lymphoma stage IV
     Dosage: ON DAY 1-2, ON 08 MAY 2014, 08 JUN 2014, 10 JUL 2014, 08 AUG 2014, 13 SEP 2014, 23 OCT 2014 AND 06 D
     Route: 065
     Dates: start: 20140408
  6. VINDESINE SULFATE [Concomitant]
     Active Substance: VINDESINE SULFATE
     Indication: Mantle cell lymphoma stage IV
     Dosage: ON DAY 1, ON 08 MAY 2014, 08 JUN 2014, 10 JUL 2014, 08 AUG 2014, 13 SEP 2014, 23 OCT 2014 AND 06 DEC
     Route: 065
     Dates: start: 20140408
  7. METHYLPREDNISOLONE SODIUM SUCCINATE [Concomitant]
     Active Substance: METHYLPREDNISOLONE SODIUM SUCCINATE
     Indication: Mantle cell lymphoma stage IV
     Dosage: ON DAY 1-5, ON 08 MAY 2014, 08 JUN 2014, 10 JUL 2014, 08 AUG 2014, 13 SEP 2014, 23 OCT 2014 AND 06 D
     Route: 065
     Dates: start: 20140408
  8. ALBUMIN HUMAN [Concomitant]
     Active Substance: ALBUMIN HUMAN
     Indication: Abdominal distension
     Route: 065
  9. ALBUMIN HUMAN [Concomitant]
     Active Substance: ALBUMIN HUMAN
     Indication: Ascites
  10. FUROSEMIDE [Concomitant]
     Active Substance: FUROSEMIDE
     Indication: Abdominal distension
     Route: 065
  11. FUROSEMIDE [Concomitant]
     Active Substance: FUROSEMIDE
     Indication: Ascites
  12. IFOSFAMIDE [Concomitant]
     Active Substance: IFOSFAMIDE
     Indication: Mantle cell lymphoma stage IV
     Dosage: ON DAY 1, 3, 5
     Route: 065
     Dates: start: 20171121
  13. IFOSFAMIDE [Concomitant]
     Active Substance: IFOSFAMIDE
     Dates: start: 20171221
  14. ETOPOSIDE [Concomitant]
     Active Substance: ETOPOSIDE
     Indication: Mantle cell lymphoma stage IV
     Dosage: ON DAY 1-2
     Route: 065
     Dates: start: 20171121
  15. ETOPOSIDE [Concomitant]
     Active Substance: ETOPOSIDE
     Dates: start: 20171221
  16. CISPLATIN [Concomitant]
     Active Substance: CISPLATIN
     Indication: Mantle cell lymphoma stage IV
     Dosage: ON DAY 1-2
     Route: 065
     Dates: start: 20171121
  17. CISPLATIN [Concomitant]
     Active Substance: CISPLATIN
     Dates: start: 20171221
  18. DEXAMETHASONE [Concomitant]
     Active Substance: DEXAMETHASONE
     Indication: Mantle cell lymphoma stage IV
     Dosage: ON DAY 1-5
     Route: 065
     Dates: start: 20171121
  19. IBRUTINIB [Concomitant]
     Active Substance: IBRUTINIB
     Indication: Mantle cell lymphoma stage IV
     Route: 048
     Dates: start: 201906
  20. IBRUTINIB [Concomitant]
     Active Substance: IBRUTINIB
     Route: 048
     Dates: end: 202108
  21. IBRUTINIB [Concomitant]
     Active Substance: IBRUTINIB
     Route: 048
     Dates: start: 20210917
  22. LAMIVUDINE [Concomitant]
     Active Substance: LAMIVUDINE
     Indication: Antiviral treatment
     Route: 048

REACTIONS (4)
  - Pneumonia [Unknown]
  - Myelosuppression [Unknown]
  - Platelet count decreased [Unknown]
  - Off label use [Unknown]
